FAERS Safety Report 7721610-X (Version None)
Quarter: 2011Q3

REPORT INFORMATION
  Report Type: 
  Country: None (occurrence: None)
  Receive Date: 20110825
  Receipt Date: 20110809
  Transmission Date: 20111222
  Serious: Yes (Death, Hospitalization)
  Sender: FDA-Public Use
  Company Number: 2011MA011582

PATIENT
  Age: 32 Year
  Sex: Male

DRUGS (5)
  1. ALPRAZOLAM [Suspect]
     Dosage: 0.07 UG/G AT AUTOPSY
  2. MITRAGYNINE (NO PREF. NAME) [Suspect]
     Indication: TOXICITY TO VARIOUS AGENTS
     Dosage: 0.05 UG/G ON AUTOPSY
  3. THC (NO PREF. NAME) [Suspect]
     Indication: TOXICITY TO VARIOUS AGENTS
     Dosage: 0.007 UG/G ON AUTOPSY
  4. O-DESMETHYLTRAMADOL (NO PREF. NAME) [Suspect]
     Indication: TOXICITY TO VARIOUS AGENTS
     Dosage: 1.1 UG/G AT AUTOPSY
  5. CITALOPRAM HYDROBROMIDE [Suspect]
     Indication: TOXICITY TO VARIOUS AGENTS
     Dosage: 0.8 UG/G ON AUTOPSY

REACTIONS (6)
  - PULMONARY OEDEMA [None]
  - TOXICITY TO VARIOUS AGENTS [None]
  - OVERDOSE [None]
  - RESPIRATORY DEPRESSION [None]
  - DRUG LEVEL INCREASED [None]
  - BRAIN OEDEMA [None]
